FAERS Safety Report 6232267-1 (Version None)
Quarter: 2009Q2

REPORT INFORMATION
  Report Type: 
  Country: None (occurrence: None)
  Receive Date: 20090617
  Receipt Date: 20090517
  Transmission Date: 20091009
  Serious: No
  Sender: FDA-Public Use
  Company Number: US-BAYER-200921125NA

PATIENT
  Sex: Male

DRUGS (2)
  1. LEVITRA [Suspect]
     Indication: DRUG USE FOR UNKNOWN INDICATION
     Dosage: AS USED: 10 MG  UNIT DOSE: 10 MG
     Dates: start: 20090517
  2. LEVITRA [Suspect]
     Dosage: AS USED: 10 MG  UNIT DOSE: 10 MG
     Dates: start: 20090517

REACTIONS (1)
  - NO ADVERSE EVENT [None]
